FAERS Safety Report 5873903-9 (Version None)
Quarter: 2008Q3

REPORT INFORMATION
  Report Type: 
  Country: None (occurrence: None)
  Receive Date: 20080903
  Receipt Date: 20080821
  Transmission Date: 20090109
  Serious: Yes (Hospitalization, Other)
  Sender: FDA-Public Use
  Company Number: PAR_01585_2007

PATIENT
  Age: 15 Month
  Sex: Female

DRUGS (3)
  1. IBUPROFEN [Suspect]
     Indication: PYREXIA
     Dosage: DF
  2. ACETAMINOPHEN [Suspect]
     Indication: PYREXIA
     Dosage: DF
  3. CEFUROXIME [Concomitant]

REACTIONS (2)
  - DRUG INTERACTION [None]
  - HYPOTHERMIA [None]
